FAERS Safety Report 4936498-X (Version None)
Quarter: 2006Q1

REPORT INFORMATION
  Report Type: 
  Country: None (occurrence: None)
  Receive Date: 20060307
  Receipt Date: 20040102
  Transmission Date: 20060701
  Serious: Yes (Death)
  Sender: FDA-Public Use
  Company Number: US-MERCK-0401USA00096

PATIENT
  Age: 54 Year
  Sex: Male
  Weight: 114 kg

DRUGS (6)
  1. VIOXX [Suspect]
     Indication: CHEST PAIN
     Route: 048
     Dates: start: 20010301, end: 20011223
  2. VIOXX [Suspect]
     Indication: PAIN IN EXTREMITY
     Route: 048
     Dates: start: 20010301, end: 20011223
  3. ULTRAM [Concomitant]
     Route: 048
     Dates: start: 20010329, end: 20011223
  4. TYLENOL (CAPLET) [Concomitant]
     Route: 065
  5. ADVIL [Concomitant]
     Route: 065
  6. FLEXERIL [Concomitant]
     Route: 048
     Dates: start: 20010320

REACTIONS (2)
  - ACUTE MYOCARDIAL INFARCTION [None]
  - THERAPEUTIC RESPONSE DECREASED [None]
